FAERS Safety Report 6010717-3 (Version None)
Quarter: 2008Q4

REPORT INFORMATION
  Report Type: 
  Country: None (occurrence: None)
  Receive Date: 20081218
  Receipt Date: 20081211
  Transmission Date: 20090506
  Serious: Yes (Hospitalization)
  Sender: FDA-Public Use
  Company Number: US-ASTRAZENECA-2008UW27706

PATIENT
  Age: 347 Day
  Sex: Female

DRUGS (1)
  1. PULMICORT RESPULES [Suspect]
     Route: 055
     Dates: start: 20081015

REACTIONS (1)
  - DYSPNOEA [None]
